FAERS Safety Report 7552625-2 (Version None)
Quarter: 2011Q2

REPORT INFORMATION
  Report Type: 
  Country: None (occurrence: None)
  Receive Date: 20110616
  Receipt Date: 20110607
  Transmission Date: 20111010
  Serious: Yes (Other)
  Sender: FDA-Public Use
  Company Number: BR-SANOFI-AVENTIS-2011SA008128

PATIENT
  Age: 52 Year
  Sex: Female
  Weight: 55 kg

DRUGS (4)
  1. GLYBURIDE [Suspect]
     Dosage: 2 TABS A DAY
     Route: 048
  2. METFORMIN HCL [Concomitant]
     Dosage: 2 TABS A DAY
     Route: 048
  3. ENALAPRIL MALEATE [Concomitant]
     Indication: HYPERTENSION
     Dosage: 1 TAB A DAY
     Route: 048
  4. DIAZEPAM [Concomitant]
     Dosage: AT NIGHT
     Route: 048

REACTIONS (10)
  - ARTHRALGIA [None]
  - ORAL PRURITUS [None]
  - BONE PAIN [None]
  - MUCOSAL INFLAMMATION [None]
  - INSOMNIA [None]
  - BURNING SENSATION [None]
  - ORAL PAIN [None]
  - VARICOSE VEIN [None]
  - MASS [None]
  - RASH [None]
